FAERS Safety Report 9508092 (Version 5)
Quarter: 2014Q3

REPORT INFORMATION
  Report Type: Report from Study
  Country: AT (occurrence: AT)
  Receive Date: 20130909
  Receipt Date: 20140829
  Transmission Date: 20150326
  Serious: Yes (Other)
  Sender: FDA-Public Use
  Company Number: AT-CELGENEUS-009-21880-13084020

PATIENT
  Age: 74 Year
  Sex: Male
  Weight: 71 kg

DRUGS (11)
  1. THROMBO ASS [Concomitant]
     Active Substance: ASPIRIN
     Indication: THROMBOSIS PROPHYLAXIS
     Route: 065
     Dates: start: 2004
  2. CREON [Concomitant]
     Active Substance: PANCRELIPASE AMYLASE\PANCRELIPASE LIPASE\PANCRELIPASE PROTEASE
     Indication: SUPPLEMENTATION THERAPY
  3. REVLIMID [Suspect]
     Active Substance: LENALIDOMIDE
     Indication: DIFFUSE LARGE B-CELL LYMPHOMA
     Dosage: 10 MILLIGRAM
     Route: 048
     Dates: start: 20110810
  4. DUROTIV [Concomitant]
     Indication: SUPPORTIVE CARE
     Route: 065
     Dates: start: 2013
  5. MOTILIUM [Concomitant]
     Active Substance: DOMPERIDONE
     Indication: SUPPORTIVE CARE
     Route: 065
     Dates: start: 2013
  6. AMLODIPINE [Concomitant]
     Active Substance: AMLODIPINE BESYLATE
     Indication: HYPERTENSION
     Route: 065
     Dates: start: 2011
  7. CREON [Concomitant]
     Active Substance: PANCRELIPASE AMYLASE\PANCRELIPASE LIPASE\PANCRELIPASE PROTEASE
     Indication: SUPPORTIVE CARE
     Route: 065
     Dates: start: 2003
  8. HYPREN [Concomitant]
     Indication: HYPERTENSION
     Route: 065
     Dates: start: 2013
  9. CRESTOR [Concomitant]
     Active Substance: ROSUVASTATIN CALCIUM
     Indication: OBESITY
     Route: 065
     Dates: start: 2005
  10. ASPIRINE [Concomitant]
     Active Substance: ASPIRIN
     Indication: PRODUCT USED FOR UNKNOWN INDICATION
     Route: 065
  11. REVLIMID [Suspect]
     Active Substance: LENALIDOMIDE
     Dosage: 10 MILLIGRAM
     Route: 048
     Dates: end: 20130220

REACTIONS (1)
  - Ductal adenocarcinoma of pancreas [Recovered/Resolved]

NARRATIVE: CASE EVENT DATE: 20130703
